FAERS Safety Report 6979529-8 (Version None)
Quarter: 2010Q3

REPORT INFORMATION
  Report Type: 
  Country: None (occurrence: None)
  Receive Date: 20100910
  Receipt Date: 20100910
  Transmission Date: 20110219
  Serious: Yes (Life-Threatening)
  Sender: FDA-Public Use
  Company Number: None

PATIENT
  Age: 8 Year
  Sex: Male
  Weight: 34.1 kg

DRUGS (1)
  1. CHILDREN'S IBUPROFEN [Suspect]
     Indication: PAIN MANAGEMENT
     Dosage: 3 TSP 1 TIME ORAL 047 (SEVERAL TIMES IN PAST 6-8 MO
     Route: 048
     Dates: start: 20100816

REACTIONS (2)
  - LIP SWELLING [None]
  - URTICARIA [None]
